FAERS Safety Report 7793091-1 (Version None)
Quarter: 2011Q3

REPORT INFORMATION
  Report Type: 
  Country: None (occurrence: None)
  Receive Date: 20110929
  Receipt Date: 20110913
  Transmission Date: 20111222
  Serious: Yes (Hospitalization, Disabling)
  Sender: FDA-Public Use
  Company Number: FRP11000265

PATIENT
  Age: 66 Year
  Sex: Female

DRUGS (12)
  1. PREVISCAN /00789001/ (FLUINDIONE) [Suspect]
     Dosage: 10 MG, 1/DAY, ORAL
     Route: 048
  2. METFORMIN HCL [Suspect]
     Dosage: 1000 MG, 3/DAY, ORAL
     Route: 048
  3. SERETIDE /01420901/ (FLUTICASONE PROPIIONATE, SALMETEROL XINAFOATE) [Suspect]
     Dosage: 1 DF, 2/DAY, RESPIRATORY
     Route: 055
  4. XOLAIR I(OMALIZUMAB) [Suspect]
     Dosage: 300 MG, 1/WEEK, SUBCUTANEOUS
     Route: 058
     Dates: start: 20070101
  5. ATARAX [Suspect]
     Dosage: 25 MG, 1/DAY, ORAL
     Route: 048
  6. PREDNISONE [Suspect]
     Dosage: 15 MG, 1/DAY, ORAL
     Route: 048
  7. ATROVENT [Suspect]
     Dosage: 1 DF, 3/DAY, RESPIRATORY (INHALATION)
     Route: 055
  8. UMULINE /00646001/ (INSULIN HUMAN) [Suspect]
     Dosage: SUBCUTANEOUS
     Route: 058
     Dates: end: 20100901
  9. OMEPRAZOLE [Suspect]
     Dosage: 20 MG, 1/DAY, ORAL
     Route: 048
  10. ACTONEL [Suspect]
     Dosage: 35 MG, 1/WEEK, ORAL
     Route: 048
  11. AMINOPHYLLINE [Suspect]
     Dosage: 400 MG, 2/DAY, ORAL
     Route: 048
  12. BRICANYL [Suspect]
     Dosage: 1 DF, 3/DAY, RESPIRATORY (INHALATION)
     Route: 055

REACTIONS (6)
  - MITRAL VALVE INCOMPETENCE [None]
  - CONGESTIVE CARDIOMYOPATHY [None]
  - DYSPNOEA EXERTIONAL [None]
  - TRICUSPID VALVE INCOMPETENCE [None]
  - AORTIC VALVE INCOMPETENCE [None]
  - EJECTION FRACTION DECREASED [None]
